FAERS Safety Report 19929384 (Version 1)
Quarter: 2021Q4

REPORT INFORMATION
  Report Type: Spontaneous
  Country: IN (occurrence: IN)
  Receive Date: 20211007
  Receipt Date: 20211007
  Transmission Date: 20220303
  Serious: Yes (Other)
  Sender: FDA-Public Use
  Company Number: IN-NOVARTISPH-NVSC2021IN228771

PATIENT
  Age: 70 Year
  Sex: Female

DRUGS (3)
  1. BROLUCIZUMAB [Suspect]
     Active Substance: BROLUCIZUMAB
     Indication: Retinal vein occlusion
     Dosage: 0.05 ML
     Route: 065
     Dates: start: 20210907
  2. JANUVIA [Concomitant]
     Active Substance: SITAGLIPTIN PHOSPHATE
     Indication: Diabetes mellitus
     Dosage: UNK, BID
     Route: 065
  3. LEVOTHYROXINE [Concomitant]
     Active Substance: LEVOTHYROXINE
     Indication: Thyroid disorder
     Dosage: UNK UNK, QD (STRENGTH 100 UNITS NOT SPECIFIED)
     Route: 065

REACTIONS (4)
  - Vitritis [Unknown]
  - Cystoid macular oedema [Recovering/Resolving]
  - Papilloedema [Unknown]
  - Off label use [Unknown]

NARRATIVE: CASE EVENT DATE: 20210907
